FAERS Safety Report 8181382-4 (Version None)
Quarter: 2012Q1

REPORT INFORMATION
  Report Type: 
  Country: None (occurrence: None)
  Receive Date: 20120302
  Receipt Date: 20120223
  Transmission Date: 20120608
  Serious: Yes (Hospitalization)
  Sender: FDA-Public Use
  Company Number: US-AMGEN-USASP2012012563

PATIENT
  Sex: Male

DRUGS (4)
  1. INCIVEK [Suspect]
     Indication: HEPATITIS C
     Dosage: UNK
  2. PEG-INTRON [Concomitant]
     Dosage: UNK
  3. PROCRIT [Suspect]
     Indication: HAEMOLYTIC ANAEMIA
  4. RIBAVIRIN [Concomitant]
     Dosage: UNK

REACTIONS (3)
  - CONFUSIONAL STATE [None]
  - PNEUMONIA [None]
  - HAEMOLYTIC ANAEMIA [None]
